FAERS Safety Report 8956798 (Version 3)
Quarter: 2013Q1

REPORT INFORMATION
  Report Type: Spontaneous
  Country: US (occurrence: US)
  Receive Date: 20121211
  Receipt Date: 20130117
  Transmission Date: 20140127
  Serious: Yes (Other)
  Sender: FDA-Public Use
  Company Number: US-MERCK-1212USA002956

PATIENT
  Sex: Male
  Weight: 92.52 kg

DRUGS (7)
  1. ZETIA [Suspect]
     Indication: BLOOD CHOLESTEROL INCREASED
     Dosage: 10 MG, QD
     Route: 048
     Dates: start: 20120521, end: 201208
  2. VENTOLIN HFA [Concomitant]
     Indication: CHRONIC OBSTRUCTIVE PULMONARY DISEASE
     Dosage: UNK
  3. HYDROCHLOROTHIAZIDE (+) LISINOPRIL [Concomitant]
     Indication: HYPERTENSION
     Dosage: 20/25 MG, UNK
     Route: 048
  4. HYDROCHLOROTHIAZIDE (+) LISINOPRIL [Concomitant]
     Dosage: UNK
  5. PLAVIX [Concomitant]
     Indication: CORONARY ARTERY DISEASE
     Dosage: 75 MG, UNK
     Route: 048
  6. HYDROCODONE/APAP [Concomitant]
     Indication: BACK PAIN
     Dosage: UNK
     Route: 048
  7. OMEPRAZOLE [Concomitant]
     Indication: GASTROOESOPHAGEAL REFLUX DISEASE
     Dosage: 20 MG, UNK
     Route: 048

REACTIONS (1)
  - Renal failure acute [Recovered/Resolved]
